FAERS Safety Report 24202989 (Version 1)
Quarter: 2024Q3

REPORT INFORMATION
  Report Type: Spontaneous
  Country: US (occurrence: US)
  Receive Date: 20240813
  Receipt Date: 20240813
  Transmission Date: 20241017
  Serious: No
  Sender: GLAXOSMITHKLINE
  Company Number: US-GSK-US2024098118

PATIENT
  Age: 64 Year
  Sex: Female

DRUGS (1)
  1. NUCALA [Suspect]
     Active Substance: MEPOLIZUMAB
     Indication: Product used for unknown indication
     Dosage: UNK
     Dates: start: 2019

REACTIONS (2)
  - Hypertension [Not Recovered/Not Resolved]
  - Glucose tolerance impaired [Not Recovered/Not Resolved]

NARRATIVE: CASE EVENT DATE: 20240806
